FAERS Safety Report 6084898-X (Version None)
Quarter: 2009Q1

REPORT INFORMATION
  Report Type: 
  Country: None (occurrence: None)
  Receive Date: 20090220
  Receipt Date: 20090211
  Transmission Date: 20090719
  Serious: Yes (Other)
  Sender: FDA-Public Use
  Company Number: PHHY2009MT05022

PATIENT
  Sex: Female

DRUGS (1)
  1. ACLASTA [Suspect]
     Indication: OSTEOPOROSIS POSTMENOPAUSAL
     Dosage: ONE 5 MG/100 ML INFUSION
     Dates: start: 20080701

REACTIONS (3)
  - EYE SWELLING [None]
  - INFLUENZA LIKE ILLNESS [None]
  - MYALGIA [None]
